FAERS Safety Report 8124938-7 (Version None)
Quarter: 2012Q1

REPORT INFORMATION
  Report Type: 
  Country: None (occurrence: None)
  Receive Date: 20120209
  Receipt Date: 20120206
  Transmission Date: 20120608
  Serious: Yes (Hospitalization)
  Sender: FDA-Public Use
  Company Number: AR-ROCHE-1038466

PATIENT
  Sex: Female

DRUGS (1)
  1. LUCENTIS [Suspect]
     Indication: DIABETIC EYE DISEASE
     Dates: start: 20110101

REACTIONS (3)
  - CEREBRAL HAEMORRHAGE [None]
  - BLOOD PRESSURE INCREASED [None]
  - PYREXIA [None]
